FAERS Safety Report 12423856 (Version 1)
Quarter: 2016Q2

REPORT INFORMATION
  Report Type: Spontaneous
  Country: US (occurrence: US)
  Receive Date: 20160601
  Receipt Date: 20160601
  Transmission Date: 20160815
  Serious: No
  Sender: FDA-Public Use
  Company Number: US-NOVEN PHARMACEUTICALS, INC.-US2015000885

PATIENT

DRUGS (7)
  1. PROZAC [Concomitant]
     Active Substance: FLUOXETINE HYDROCHLORIDE
  2. DAYTRANA [Suspect]
     Active Substance: METHYLPHENIDATE
     Dosage: 40 MG (TWO 20MG PATCHES TOGETHER), UNKNOWN
     Route: 062
  3. SYNTHROID [Concomitant]
     Active Substance: LEVOTHYROXINE SODIUM
  4. HYDROCORTISONE. [Concomitant]
     Active Substance: HYDROCORTISONE
  5. SINGULAIR [Concomitant]
     Active Substance: MONTELUKAST SODIUM
  6. DAYTRANA [Suspect]
     Active Substance: METHYLPHENIDATE
     Indication: ATTENTION DEFICIT/HYPERACTIVITY DISORDER
     Dosage: TWO 30 MG PATCHES, QD
     Route: 062
  7. FLORINEF ACETATE [Concomitant]
     Active Substance: FLUDROCORTISONE ACETATE

REACTIONS (4)
  - Off label use [Not Recovered/Not Resolved]
  - No adverse event [Unknown]
  - Wrong technique in product usage process [Not Recovered/Not Resolved]
  - Prescribed overdose [Not Recovered/Not Resolved]
